FAERS Safety Report 23592129 (Version 1)
Quarter: 2024Q1

REPORT INFORMATION
  Report Type: Spontaneous
  Country: FR (occurrence: FR)
  Receive Date: 20240304
  Receipt Date: 20240304
  Transmission Date: 20240410
  Serious: Yes (Hospitalization)
  Sender: FDA-Public Use
  Company Number: None

PATIENT
  Age: 51 Year
  Sex: Male

DRUGS (1)
  1. VENLAFAXINE [Suspect]
     Active Substance: VENLAFAXINE HYDROCHLORIDE
     Indication: Poisoning deliberate
     Dosage: VENLAFAXINE TEVA SANTE L.P. 12 TO 14 CP IN A SINGLE TAKE
     Route: 048
     Dates: start: 20231218

REACTIONS (4)
  - Restlessness [Recovered/Resolved]
  - Mydriasis [Recovered/Resolved]
  - Poisoning deliberate [Recovered/Resolved]
  - Sinus tachycardia [Recovered/Resolved]

NARRATIVE: CASE EVENT DATE: 20231219
